FAERS Safety Report 10037136 (Version 1)
Quarter: 2014Q1

REPORT INFORMATION
  Report Type: Spontaneous
  Country: CH (occurrence: CH)
  Receive Date: 20140326
  Receipt Date: 20140326
  Transmission Date: 20141002
  Serious: Yes (Death, Hospitalization, Other)
  Sender: FDA-Public Use
  Company Number: CH-AMGEN-CHESP2014019442

PATIENT
  Age: 78 Year
  Sex: Female

DRUGS (3)
  1. PROLIA [Suspect]
     Indication: OSTEOPOROSIS
     Dosage: 60 MG, Q6MO
     Route: 058
     Dates: start: 201310, end: 201401
  2. FORSTEO [Suspect]
     Indication: OSTEOPOROSIS
     Dosage: 20 MUG, QD
     Route: 058
     Dates: start: 20140205
  3. FORSTEO [Suspect]
     Indication: FRACTURE

REACTIONS (3)
  - Multi-organ failure [Fatal]
  - Sepsis [Fatal]
  - Abdominal pain [Not Recovered/Not Resolved]
